FAERS Safety Report 23262403 (Version 2)
Quarter: 2023Q4

REPORT INFORMATION
  Report Type: Report from Study
  Country: US (occurrence: None)
  Receive Date: 20231205
  Receipt Date: 20231215
  Transmission Date: 20240110
  Serious: Yes (Other)
  Sender: FDA-Public Use
  Company Number: 2023A271415

PATIENT
  Age: 70 Year
  Sex: Male

DRUGS (1)
  1. FARXIGA [Suspect]
     Active Substance: DAPAGLIFLOZIN PROPANEDIOL
     Indication: Chronic kidney disease
     Route: 048
     Dates: start: 20231028, end: 20231126

REACTIONS (5)
  - Brain injury [Unknown]
  - Renal disorder [Unknown]
  - Disease progression [Unknown]
  - Cerebral disorder [Unknown]
  - Product use issue [Unknown]
